FAERS Safety Report 10426136 (Version 1)
Quarter: 2014Q3

REPORT INFORMATION
  Report Type: Spontaneous
  Country: GR (occurrence: GR)
  Receive Date: 20140903
  Receipt Date: 20140903
  Transmission Date: 20150326
  Serious: Yes (Hospitalization)
  Sender: FDA-Public Use
  Company Number: GR-ROCHE-1456033

PATIENT
  Sex: Female

DRUGS (2)
  1. CELLCEPT [Suspect]
     Active Substance: MYCOPHENOLATE MOFETIL\MYCOPHENOLATE MOFETIL HYDROCHLORIDE
     Route: 065
     Dates: start: 2013
  2. CELLCEPT [Suspect]
     Active Substance: MYCOPHENOLATE MOFETIL\MYCOPHENOLATE MOFETIL HYDROCHLORIDE
     Indication: NEUROMYELITIS OPTICA
     Route: 065
     Dates: start: 2008

REACTIONS (2)
  - Off label use [Unknown]
  - Neuromyelitis optica [Unknown]

NARRATIVE: CASE EVENT DATE: 2008
